FAERS Safety Report 9170810 (Version 1)
Quarter: 2013Q1

REPORT INFORMATION
  Report Type: Spontaneous
  Country: US (occurrence: US)
  Receive Date: 20130319
  Receipt Date: 20130319
  Transmission Date: 20140127
  Serious: No
  Sender: FDA-Public Use
  Company Number: US-PFIZER INC-2013085671

PATIENT
  Age: 81 Year
  Sex: Female
  Weight: 73.5 kg

DRUGS (10)
  1. XALKORI [Suspect]
     Indication: LUNG NEOPLASM MALIGNANT
     Dosage: 250 MG, 2X/DAY (1 CAPSULE EVERY 12 HOURS)
  2. SYMBICORT [Concomitant]
  3. VENTOLIN HFA [Concomitant]
  4. METOPROLOL [Concomitant]
     Dosage: 25 MG, UNK
  5. FENOFIBRATE [Concomitant]
     Dosage: 43 MG, UNK
  6. CRESTOR [Concomitant]
     Dosage: 5 MG, UNK
  7. ADVIL [Concomitant]
     Dosage: 200 MG, UNK
  8. CENTRUM SILVER [Concomitant]
     Dosage: UNK
  9. FISH OIL [Concomitant]
     Dosage: UNK
  10. VITAMIN C [Concomitant]
     Dosage: 100 MG, UNK

REACTIONS (4)
  - Dysgeusia [Unknown]
  - Decreased appetite [Unknown]
  - Weight decreased [Unknown]
  - Dyspnoea [Unknown]
